FAERS Safety Report 5755503-4 (Version None)
Quarter: 2008Q2

REPORT INFORMATION
  Report Type: 
  Country: None (occurrence: None)
  Receive Date: 20080602
  Receipt Date: 20080530
  Transmission Date: 20081010
  Serious: Yes (Hospitalization)
  Sender: FDA-Public Use
  Company Number: FR-RB-001674-08

PATIENT
  Sex: Female
  Weight: 3420 kg

DRUGS (2)
  1. SUBUTEX [Suspect]
     Indication: DRUG USE FOR UNKNOWN INDICATION
     Dosage: DOSE UNKNOWN.
     Route: 064
     Dates: start: 20070701, end: 20080419
  2. ZOLOFT [Suspect]
     Indication: DRUG USE FOR UNKNOWN INDICATION
     Dosage: UNKNOWN DOSE.
     Route: 064
     Dates: end: 20080419

REACTIONS (2)
  - BRADYCARDIA NEONATAL [None]
  - DRUG EXPOSURE DURING PREGNANCY [None]
